FAERS Safety Report 25039223 (Version 1)
Quarter: 2025Q1

REPORT INFORMATION
  Report Type: Report from Study
  Country: US (occurrence: US)
  Receive Date: 20250305
  Receipt Date: 20250305
  Transmission Date: 20250409
  Serious: Yes (Hospitalization)
  Sender: JAZZ
  Company Number: US-JAZZ PHARMACEUTICALS-2025-US-005570

PATIENT
  Sex: Male
  Weight: 131.52 kg

DRUGS (1)
  1. EPIDIOLEX [Suspect]
     Active Substance: CANNABIDIOL
     Indication: Idiopathic generalised epilepsy
     Dosage: 4 MILLILITER, BID
     Route: 048
     Dates: start: 202410

REACTIONS (2)
  - Hospitalisation [Unknown]
  - Weight decreased [Unknown]
